FAERS Safety Report 7352390-8 (Version None)
Quarter: 2011Q1

REPORT INFORMATION
  Report Type: 
  Country: None (occurrence: None)
  Receive Date: 20110315
  Receipt Date: 20100914
  Transmission Date: 20110831
  Serious: Yes (Other)
  Sender: FDA-Public Use
  Company Number: US-BAYER-201025771NA

PATIENT
  Sex: Female
  Weight: 62.585 kg

DRUGS (12)
  1. YAZ [Suspect]
     Indication: PRODUCT USED FOR UNKNOWN INDICATION
     Route: 048
  2. DICYCLOMINE [Concomitant]
     Indication: PRODUCT USED FOR UNKNOWN INDICATION
  3. TRI-SPRINTEC [Concomitant]
     Dosage: UNK
     Dates: start: 20060401, end: 20060601
  4. OVCON-50 [Concomitant]
     Dosage: UNK
     Dates: start: 20040101, end: 20050101
  5. YASMIN [Suspect]
     Indication: MENSTRUATION IRREGULAR
     Dosage: UNK
     Route: 048
     Dates: start: 20020101, end: 20080101
  6. OCELLA [Suspect]
     Indication: MENSTRUATION IRREGULAR
     Dosage: UNK
     Dates: start: 20080101, end: 20090101
  7. ZELNORM [Concomitant]
     Indication: PRODUCT USED FOR UNKNOWN INDICATION
     Dosage: 6 MG, BID
     Route: 048
  8. MERIDIA [Concomitant]
     Dosage: 10 MG, UNK
     Dates: start: 20070401
  9. SEASONALE [Concomitant]
     Indication: PRODUCT USED FOR UNKNOWN INDICATION
  10. MERIDIA [Concomitant]
     Dosage: 10 MG, UNK
     Dates: start: 20070501
  11. MERIDIA [Concomitant]
     Dosage: 10 MG, UNK
     Dates: start: 20070901
  12. NEXIUM [Concomitant]

REACTIONS (5)
  - CHOLESTEROSIS [None]
  - BILIARY DYSKINESIA [None]
  - ABDOMINAL PAIN [None]
  - ABDOMINAL PAIN UPPER [None]
  - INJURY [None]
